FAERS Safety Report 8575446-0 (Version None)
Quarter: 2012Q3

REPORT INFORMATION
  Report Type: 
  Country: None (occurrence: None)
  Receive Date: 20120807
  Receipt Date: 20120801
  Transmission Date: 20120928
  Serious: Yes (Hospitalization, Other)
  Sender: FDA-Public Use
  Company Number: PHHY2012BR039162

PATIENT
  Sex: Female

DRUGS (10)
  1. EXELON [Suspect]
     Dosage: 13.3 MG/24 HOURS (27\15CM2)
     Route: 062
  2. RISPERIDONE [Concomitant]
     Indication: DELIRIUM
  3. EXELON [Suspect]
     Indication: DEMENTIA ALZHEIMER'S TYPE
     Dosage: 9.5 MG/24 HOURS (18\10CM2)
     Route: 062
  4. ALPRAZOLAM [Concomitant]
     Indication: SLEEP DISORDER
     Dosage: 1 DF DAILY
     Route: 048
  5. IBUPROFEN [Concomitant]
     Indication: PAIN
     Dosage: 2 DF DAILY
     Route: 048
  6. CAPTOPRIL [Concomitant]
     Indication: HYPERTENSION
     Dosage: 1 DF DAILY
     Route: 048
  7. ACETAMINOPHEN [Concomitant]
     Indication: PAIN
     Dosage: 2 TABLETS DAILY
     Route: 048
  8. CONDROFLEX [Concomitant]
     Dosage: 1 SACHET DAILY
     Route: 048
  9. DIPYRONE INJ [Concomitant]
     Indication: PAIN
     Dosage: 2 TABLETS DAILY
     Route: 048
  10. RISPERIDONE [Concomitant]
     Indication: ABNORMAL BEHAVIOUR
     Dosage: 1 DF DAILY
     Route: 048

REACTIONS (3)
  - KIDNEY INFECTION [None]
  - NEPHROLITHIASIS [None]
  - POST PROCEDURAL INFECTION [None]
